FAERS Safety Report 18119227 (Version 1)
Quarter: 2020Q3

REPORT INFORMATION
  Report Type: Report from Study
  Country: US (occurrence: US)
  Receive Date: 20200806
  Receipt Date: 20200806
  Transmission Date: 20201103
  Serious: Yes (Hospitalization)
  Sender: FDA-Public Use
  Company Number: NVSC2020US214864

PATIENT
  Sex: Female

DRUGS (1)
  1. ENTRESTO [Suspect]
     Active Substance: SACUBITRIL\VALSARTAN
     Indication: CARDIAC FAILURE
     Dosage: UNK
     Route: 048

REACTIONS (7)
  - Poor quality sleep [Unknown]
  - Fatigue [Unknown]
  - Dizziness [Unknown]
  - Hypotension [Unknown]
  - Heart rate increased [Unknown]
  - Visual impairment [Unknown]
  - Insomnia [Unknown]
